FAERS Safety Report 4737090-2 (Version None)
Quarter: 2005Q3

REPORT INFORMATION
  Report Type: 
  Country: None (occurrence: None)
  Receive Date: 20050804
  Receipt Date: 20050725
  Transmission Date: 20060218
  Serious: Yes (Life-Threatening)
  Sender: FDA-Public Use
  Company Number: 05ITY0151

PATIENT
  Age: 72 Year
  Sex: Male

DRUGS (3)
  1. AGGRASTAT [Suspect]
     Dosage: 12 MG/ML ONE TIME DOSE
     Dates: start: 20050701, end: 20050701
  2. ASPIRIN [Concomitant]
  3. CLOPIDOGREL BISULFATE [Concomitant]

REACTIONS (3)
  - HAEMOLYSIS [None]
  - LIVER FUNCTION TEST ABNORMAL [None]
  - THROMBOCYTOPENIA [None]
